FAERS Safety Report 14191233 (Version 1)
Quarter: 2017Q4

REPORT INFORMATION
  Report Type: Spontaneous
  Country: US (occurrence: US)
  Receive Date: 20171115
  Receipt Date: 20171115
  Transmission Date: 20180321
  Serious: Yes (Hospitalization, Other)
  Sender: FDA-Public Use
  Company Number: US-PFIZER INC-2017483894

PATIENT
  Age: 48 Year
  Sex: Female
  Weight: 58.51 kg

DRUGS (7)
  1. EFFEXOR XR [Suspect]
     Active Substance: VENLAFAXINE HYDROCHLORIDE
     Dosage: 150 MG, UNK
     Dates: start: 20171024, end: 20171024
  2. EFFEXOR XR [Suspect]
     Active Substance: VENLAFAXINE HYDROCHLORIDE
     Dosage: 112.5 MG, UNK
     Dates: start: 20171025, end: 2017
  3. VENLAFAXINE HCL [Suspect]
     Active Substance: VENLAFAXINE HYDROCHLORIDE
     Indication: MENTAL DISORDER
     Dosage: 225 MG, 1X/DAY (EVERY MORNING)
     Route: 048
  4. EFFEXOR XR [Suspect]
     Active Substance: VENLAFAXINE HYDROCHLORIDE
     Dosage: 75 MG, UNK
     Dates: start: 20171108, end: 2017
  5. EFFEXOR XR [Suspect]
     Active Substance: VENLAFAXINE HYDROCHLORIDE
     Indication: ANXIETY
     Dosage: 300 MG, UNK
  6. TRAZODONE [Concomitant]
     Active Substance: TRAZODONE HYDROCHLORIDE
     Indication: SLEEP DISORDER
     Dosage: 25 MG, 1X/DAY (AT BEDTIME, THEY GIVE HER 50MG, BUT SHE IS THE TYPE THAT LIKES TO)
     Dates: start: 2015
  7. CLONAZEPAM. [Concomitant]
     Active Substance: CLONAZEPAM
     Indication: SLEEP DISORDER
     Dosage: 0.5 MG, 1X/DAY (AT BEDTIME)
     Dates: start: 2006

REACTIONS (19)
  - Nervousness [Recovering/Resolving]
  - White blood cell count increased [Unknown]
  - Weight decreased [Unknown]
  - Feeling abnormal [Unknown]
  - White blood cell count decreased [Unknown]
  - Drug ineffective [Unknown]
  - Asthenia [Recovering/Resolving]
  - Inflammation [Unknown]
  - Crying [Recovering/Resolving]
  - Drug tolerance [Unknown]
  - Palpitations [Unknown]
  - Influenza like illness [Unknown]
  - Pain [Unknown]
  - Overdose [Unknown]
  - Colon neoplasm [Unknown]
  - Withdrawal syndrome [Unknown]
  - Tremor [Unknown]
  - Fear [Unknown]
  - Stress [Unknown]

NARRATIVE: CASE EVENT DATE: 201702
